FAERS Safety Report 5310794-9 (Version None)
Quarter: 2007Q2

REPORT INFORMATION
  Report Type: 
  Country: None (occurrence: None)
  Receive Date: 20070428
  Receipt Date: 20070416
  Transmission Date: 20071010
  Serious: Yes (Other)
  Sender: FDA-Public Use
  Company Number: US-PFIZER INC-2007016894

PATIENT
  Sex: Female
  Weight: 65.8 kg

DRUGS (4)
  1. DEPO-PROVERA [Suspect]
     Indication: ENDOMETRIOSIS
     Route: 030
     Dates: start: 20000101, end: 20000101
  2. MEDROXYPROGESTERONE ACETATE [Suspect]
     Indication: ENDOMETRIOSIS
     Route: 030
  3. NEXIUM [Concomitant]
  4. CLARITIN [Concomitant]

REACTIONS (3)
  - BLINDNESS [None]
  - DRY EYE [None]
  - VISION BLURRED [None]
